FAERS Safety Report 5964967-2 (Version None)
Quarter: 2008Q4

REPORT INFORMATION
  Report Type: 
  Country: None (occurrence: None)
  Receive Date: 20081125
  Receipt Date: 20081113
  Transmission Date: 20090506
  Serious: Yes (Other)
  Sender: FDA-Public Use
  Company Number: PHBS2008FR06381

PATIENT
  Age: 29 Year
  Sex: Female

DRUGS (2)
  1. OXYTOCIN [Suspect]
     Indication: POSTPARTUM HAEMORRHAGE
     Route: 042
  2. SULPROSTONE [Concomitant]

REACTIONS (5)
  - ARTERIAL LIGATION [None]
  - HYSTEROTOMY [None]
  - OBSTETRICAL PROCEDURE [None]
  - SUTURE INSERTION [None]
  - UTERINE ATONY [None]
